FAERS Safety Report 6940494-0 (Version None)
Quarter: 2010Q3

REPORT INFORMATION
  Report Type: 
  Country: None (occurrence: None)
  Receive Date: 20100825
  Receipt Date: 20100818
  Transmission Date: 20110219
  Serious: Yes (Other)
  Sender: FDA-Public Use
  Company Number: US-SANOFI-AVENTIS-2010SA040942

PATIENT
  Age: 65 Year
  Sex: Male
  Weight: 93.18 kg

DRUGS (8)
  1. MULTAQ [Suspect]
     Indication: ATRIAL FIBRILLATION
     Route: 048
     Dates: start: 20100708
  2. MULTAQ [Suspect]
     Route: 048
     Dates: start: 20100708
  3. ATENOLOL [Concomitant]
     Route: 048
  4. LISINOPRIL [Concomitant]
     Route: 065
  5. ALLOPURINOL [Concomitant]
  6. PERCOCET [Concomitant]
     Dosage: 10/325 MG, AND CAN TAKE UP TO FIVE TABLETS DAILY
     Dates: start: 19850101
  7. XANAX [Concomitant]
     Indication: SLEEP DISORDER
     Dosage: TAKES
  8. COUMADIN [Concomitant]
     Indication: ANTICOAGULANT THERAPY
     Route: 065
     Dates: start: 20100720

REACTIONS (8)
  - ASTHENIA [None]
  - ATRIAL FIBRILLATION [None]
  - DIARRHOEA [None]
  - DYSPNOEA [None]
  - FATIGUE [None]
  - NAUSEA [None]
  - OEDEMA PERIPHERAL [None]
  - PALPITATIONS [None]
